FAERS Safety Report 13028835 (Version 1)
Quarter: 2016Q4

REPORT INFORMATION
  Report Type: Report from Study
  Country: None (occurrence: CA)
  Receive Date: 20161214
  Receipt Date: 20161214
  Transmission Date: 20170207
  Serious: Yes (Hospitalization, Other)
  Sender: FDA-Public Use
  Company Number: CA-ABBVIE-12P-028-0919332-00

PATIENT
  Age: 77 Year
  Sex: Male

DRUGS (7)
  1. LUPRON DEPOT [Suspect]
     Active Substance: LEUPROLIDE ACETATE
     Indication: PROSTATE CANCER
     Route: 030
     Dates: start: 20111124
  2. LUPRON DEPOT [Suspect]
     Active Substance: LEUPROLIDE ACETATE
     Dosage: FEBRUARY DOSE
     Route: 030
  3. FUROSEMID [Concomitant]
     Active Substance: FUROSEMIDE
     Indication: PRODUCT USED FOR UNKNOWN INDICATION
  4. WARFARIN [Concomitant]
     Active Substance: WARFARIN
     Indication: PRODUCT USED FOR UNKNOWN INDICATION
  5. DIGOXIN. [Concomitant]
     Active Substance: DIGOXIN
     Indication: PRODUCT USED FOR UNKNOWN INDICATION
  6. RAMIPRIL. [Concomitant]
     Active Substance: RAMIPRIL
     Indication: PRODUCT USED FOR UNKNOWN INDICATION
  7. UNKNOWN OTHER INVESTIGATIONAL DRUG [Concomitant]
     Indication: PRODUCT USED FOR UNKNOWN INDICATION

REACTIONS (24)
  - Cardiomyopathy [Unknown]
  - Pulmonary embolism [Unknown]
  - Flushing [Unknown]
  - Bundle branch block left [Unknown]
  - Fatigue [Unknown]
  - Kyphosis [Unknown]
  - Hydronephrosis [Unknown]
  - Dyspnoea [Recovered/Resolved]
  - Dyspnoea [Unknown]
  - Oedema peripheral [Unknown]
  - Prostatic obstruction [Unknown]
  - Oedema peripheral [Unknown]
  - Crepitations [Unknown]
  - General physical health deterioration [Unknown]
  - Cardiac failure congestive [Recovered/Resolved]
  - Tachypnoea [Unknown]
  - Metastases to bone [Unknown]
  - Atrial fibrillation [Unknown]
  - Prostatic specific antigen increased [Unknown]
  - Cardiomegaly [Unknown]
  - Rales [Unknown]
  - Dyspnoea exertional [Unknown]
  - Heart rate irregular [Unknown]
  - Oedema [Unknown]

NARRATIVE: CASE EVENT DATE: 20120314
